FAERS Safety Report 10079446 (Version 1)
Quarter: 2014Q2

REPORT INFORMATION
  Report Type: Spontaneous
  Country: GB (occurrence: GB)
  Receive Date: 20140415
  Receipt Date: 20140415
  Transmission Date: 20141212
  Serious: Yes (Death)
  Sender: FDA-Public Use
  Company Number: GB-BRISTOL-MYERS SQUIBB COMPANY-20637534

PATIENT
  Sex: 0

DRUGS (1)
  1. ABATACEPT [Suspect]

REACTIONS (1)
  - Sudden death [Fatal]
